FAERS Safety Report 8963218 (Version 1)
Quarter: 2012Q4

REPORT INFORMATION
  Report Type: 
  Country: US (occurrence: US)
  Receive Date: 20121214
  Receipt Date: 20121214
  Transmission Date: 20130627
  Serious: No
  Sender: FDA-Public Use
  Company Number: US-PFIZER INC-2012313701

PATIENT
  Age: 37 Year
  Sex: Female
  Weight: 56.69 kg

DRUGS (1)
  1. ADVIL ALLERGY SINUS [Suspect]
     Indication: SINUS INFECTION
     Dosage: UNK, 1x/day
     Route: 048
     Dates: start: 20121211

REACTIONS (2)
  - Somnolence [Unknown]
  - Hypersomnia [Unknown]
